FAERS Safety Report 5724540-8 (Version None)
Quarter: 2008Q2

REPORT INFORMATION
  Report Type: 
  Country: None (occurrence: None)
  Receive Date: 20080501
  Receipt Date: 20080425
  Transmission Date: 20081010
  Serious: Yes (Other)
  Sender: FDA-Public Use
  Company Number: ES-BAYER-200816180GPV

PATIENT
  Age: 31 Year
  Sex: Female

DRUGS (1)
  1. BETAFERON /INTERFERON BETA-1B [Suspect]
     Indication: MULTIPLE SCLEROSIS
     Route: 058
     Dates: start: 20071001, end: 20080401

REACTIONS (9)
  - ALOPECIA [None]
  - CHEST PAIN [None]
  - DISTURBANCE IN ATTENTION [None]
  - DRY SKIN [None]
  - FATIGUE [None]
  - HYPOTHYROIDISM [None]
  - INFLUENZA LIKE ILLNESS [None]
  - MYALGIA [None]
  - SOMNOLENCE [None]
